FAERS Safety Report 9330930 (Version 1)
Quarter: 2013Q2

REPORT INFORMATION
  Report Type: Spontaneous
  Country: US (occurrence: None)
  Receive Date: 20130531
  Receipt Date: 20130531
  Transmission Date: 20140414
  Serious: Yes (Other)
  Sender: FDA-Public Use
  Company Number: AUR-APL-2013-04197

PATIENT
  Age: 24 Year
  Sex: Female

DRUGS (1)
  1. FLUCONAZOLE (FLUCONAZOLE) [Suspect]
     Indication: VULVOVAGINAL CANDIDIASIS
     Route: 048

REACTIONS (6)
  - Drug eruption [None]
  - Pruritus [None]
  - Erythema [None]
  - Skin exfoliation [None]
  - Blister [None]
  - Pain [None]
